FAERS Safety Report 5426779-8 (Version None)
Quarter: 2007Q3

REPORT INFORMATION
  Report Type: 
  Country: None (occurrence: None)
  Receive Date: 20070731
  Receipt Date: 20070412
  Transmission Date: 20080115
  Serious: No
  Sender: FDA-Public Use
  Company Number: 2007PV032621

PATIENT
  Age: 64 Year
  Sex: Female

DRUGS (6)
  1. EXENATIDE(EXENATIDE) PEN,DISPOSABLE [Suspect]
     Indication: TYPE 2 DIABETES MELLITUS
     Dosage: 5 UG, EACH MORNING, SUBCUTANEOUS 5UG, 2/D
     Route: 058
     Dates: start: 20070301
  2. EXENATIDE(EXENATIDE) PEN,DISPOSABLE [Suspect]
     Indication: TYPE 2 DIABETES MELLITUS
     Dosage: 5 UG, EACH MORNING, SUBCUTANEOUS 5UG, 2/D
     Route: 058
     Dates: start: 20070314
  3. METFORMIN HCL [Concomitant]
  4. ACTOS [Concomitant]
  5. AMARYL [Concomitant]
  6. EXENATIDE(EXENATIDE) PEN,DISPOSABLE [Suspect]

REACTIONS (4)
  - ABDOMINAL DISTENSION [None]
  - DECREASED APPETITE [None]
  - EARLY SATIETY [None]
  - NAUSEA [None]
